FAERS Safety Report 23704232 (Version 1)
Quarter: 2024Q2

REPORT INFORMATION
  Report Type: Report from Study
  Country: US (occurrence: US)
  Receive Date: 20240404
  Receipt Date: 20240404
  Transmission Date: 20240715
  Serious: Yes (Hospitalization, Other)
  Sender: FDA-Public Use
  Company Number: US-ABBVIE-5700784

PATIENT
  Sex: Female

DRUGS (1)
  1. CREON [Suspect]
     Active Substance: PANCRELIPASE AMYLASE\PANCRELIPASE LIPASE\PANCRELIPASE PROTEASE
     Indication: Pancreatic carcinoma
     Dosage: FORM STRENGTH: 12000 UNIT
     Route: 048
     Dates: start: 2022

REACTIONS (3)
  - Sepsis [Recovering/Resolving]
  - Device related infection [Recovered/Resolved]
  - Nosocomial infection [Unknown]

NARRATIVE: CASE EVENT DATE: 20240101
